FAERS Safety Report 8397205-4 (Version None)
Quarter: 2012Q2

REPORT INFORMATION
  Report Type: 
  Country: None (occurrence: None)
  Receive Date: 20120530
  Receipt Date: 20120524
  Transmission Date: 20120825
  Serious: Yes (Hospitalization, Other)
  Sender: FDA-Public Use
  Company Number: US-MERCK-1110USA00455

PATIENT
  Age: 78 Year
  Sex: Female
  Weight: 55 kg

DRUGS (8)
  1. FOSAMAX [Suspect]
     Indication: OSTEOPOROSIS
     Route: 048
     Dates: start: 20000829, end: 20010228
  2. SIMVASTATIN [Concomitant]
     Indication: HYPERCHOLESTEROLAEMIA
     Route: 065
     Dates: start: 19800101
  3. FOSAMAX [Suspect]
     Route: 048
     Dates: start: 20000101, end: 20100101
  4. HYDROCHLOROTHIAZIDE [Concomitant]
     Route: 048
     Dates: start: 19800101
  5. DIOVAN [Concomitant]
     Indication: HYPERTENSION
     Route: 065
     Dates: start: 19800101
  6. OS-CAL + D [Concomitant]
     Indication: OSTEOPOROSIS
     Route: 048
  7. ATACAND [Concomitant]
     Indication: HYPERTENSION
     Route: 048
  8. FOSAMAX [Suspect]
     Route: 048
     Dates: start: 20010228, end: 20100901

REACTIONS (31)
  - OSTEONECROSIS OF JAW [None]
  - ERYSIPELAS [None]
  - FISTULA [None]
  - TEMPOROMANDIBULAR JOINT SYNDROME [None]
  - OSTEOARTHRITIS [None]
  - TOOTH DISORDER [None]
  - SYNOVITIS [None]
  - DRUG HYPERSENSITIVITY [None]
  - CELLULITIS [None]
  - ARTHRITIS [None]
  - ORAL INFECTION [None]
  - UPPER RESPIRATORY TRACT INFECTION [None]
  - TOOTH FRACTURE [None]
  - SQUAMOUS CELL CARCINOMA OF SKIN [None]
  - WEIGHT DECREASED [None]
  - DEMENTIA [None]
  - DEAFNESS NEUROSENSORY [None]
  - CATARACT [None]
  - ONYCHOMYCOSIS [None]
  - TENDONITIS [None]
  - OSTEOMYELITIS [None]
  - GLAUCOMA [None]
  - EAR PAIN [None]
  - FOOT DEFORMITY [None]
  - PHLEBITIS [None]
  - PERIPHERAL VASCULAR DISORDER [None]
  - NECROSIS [None]
  - IMPAIRED HEALING [None]
  - EXOSTOSIS [None]
  - CARPAL TUNNEL SYNDROME [None]
  - AMNESIA [None]
